FAERS Safety Report 8826530 (Version 2)
Quarter: 2012Q4

REPORT INFORMATION
  Report Type: 
  Country: SI (occurrence: SI)
  Receive Date: 20121007
  Receipt Date: 20121026
  Transmission Date: 20130627
  Serious: Yes (Life-Threatening, Hospitalization, Other)
  Sender: FDA-Public Use
  Company Number: SI-AMGEN-SVNSP2012062629

PATIENT
  Sex: Female

DRUGS (3)
  1. PROLIA [Suspect]
     Indication: OSTEOPOROSIS
     Dosage: 60 mg, q6mo
     Route: 058
  2. CALCIUM [Concomitant]
  3. ROCALTROL [Concomitant]

REACTIONS (6)
  - Hypocalcaemia [Recovering/Resolving]
  - Tetany [Recovering/Resolving]
  - Muscle spasms [Recovering/Resolving]
  - Laryngospasm [Unknown]
  - Hyperhidrosis [Recovering/Resolving]
  - Bronchospasm [Recovering/Resolving]
